FAERS Safety Report 12715082 (Version 2)
Quarter: 2016Q3

REPORT INFORMATION
  Report Type: Spontaneous
  Country: JP (occurrence: JP)
  Receive Date: 20160905
  Receipt Date: 20160913
  Transmission Date: 20161109
  Serious: Yes (Hospitalization, Other)
  Sender: FDA-Public Use
  Company Number: JP-009507513-1508JPN010192

PATIENT
  Age: 53 Year
  Sex: Female

DRUGS (21)
  1. ZYPREXA [Suspect]
     Active Substance: OLANZAPINE
     Dosage: 5-10 MG
  2. TIAPRIDE HYDROCHLORIDE [Concomitant]
     Active Substance: TIAPRIDE HYDROCHLORIDE
     Dosage: 50-150 MG, QD
     Dates: start: 2013
  3. MENESIT TABLETS - 100 [Suspect]
     Active Substance: CARBIDOPA\LEVODOPA
     Dosage: 600 MG, QD, DIVIDED DOSE FREQUENCY UNKNOWN
     Route: 048
     Dates: start: 201405, end: 201501
  4. NEUPRO [Suspect]
     Active Substance: ROTIGOTINE
     Dosage: FORMULATION: PATCH, DAILY DOSAGE UNKNOWN
     Route: 062
     Dates: start: 2014
  5. BIPERIDEN [Concomitant]
     Active Substance: BIPERIDEN
     Indication: PARKINSON^S DISEASE
     Dosage: 6 MG, QD, FORMULATION: POR, DIVIDED DOSE FREQUENCY UNKNOWN
     Route: 048
  6. BIPERIDEN [Concomitant]
     Active Substance: BIPERIDEN
     Dosage: 3 MG, QD, FORMULATION: POR
     Route: 048
  7. YOKU-KAN-SAN [Concomitant]
     Dosage: DAILY DOSAGE UNKNOWN
     Route: 048
  8. RISPERIDONE. [Suspect]
     Active Substance: RISPERIDONE
     Dosage: 2 MG, QD, DIVIDED DOSE FREQUENCY UNKNOWN
     Route: 065
  9. QUETIAPINE FUMARATE. [Suspect]
     Active Substance: QUETIAPINE FUMARATE
     Dosage: 75 MG, QD, FORMULATION: POR, DIVIDED DOSE FREQUENCY UNKNOWN
     Route: 048
  10. MENESIT TABLETS - 100 [Suspect]
     Active Substance: CARBIDOPA\LEVODOPA
     Indication: DEMENTIA WITH LEWY BODIES
     Dosage: 100 MG, QD, DIVIDED DOSE FREQUENCY UNKNOWN
     Route: 048
     Dates: start: 201309, end: 2013
  11. REQUIP [Suspect]
     Active Substance: ROPINIROLE HYDROCHLORIDE
     Indication: PARKINSON^S DISEASE
     Dosage: 6 MG, QD, DIVIDED DOSE FREQUENCY UNKNOWN
     Route: 048
     Dates: end: 201501
  12. LULLAN [Suspect]
     Active Substance: PEROSPIRONE HYDROCHLORIDE
     Indication: RESTLESSNESS
     Dosage: FORMULATION: POR, 8 - 16 MG/DAY, DAILY DOSE UNKNOWN
     Route: 048
  13. PEROSPIRONE [Concomitant]
     Active Substance: PEROSPIRONE
     Dosage: 8-16 MG
     Dates: start: 2013
  14. MENESIT TABLETS - 100 [Suspect]
     Active Substance: CARBIDOPA\LEVODOPA
     Dosage: TAPERED, DAILY DOSAGE UNKNOWN
     Route: 048
     Dates: start: 201501, end: 2015
  15. MENESIT TABLETS - 100 [Suspect]
     Active Substance: CARBIDOPA\LEVODOPA
     Dosage: 50 MG, QD, DIVIDED DOSE FREQUENCY UNKNOWN
     Route: 048
     Dates: start: 201502, end: 2015
  16. ZYPREXA [Suspect]
     Active Substance: OLANZAPINE
     Dosage: 5 - 10 MG QD/DAILY DOSE UNKNOWN
     Route: 065
     Dates: start: 2013
  17. BROTIZOLAM [Concomitant]
     Active Substance: BROTIZOLAM
     Dosage: 0.25 MG QD, FORMULATION: POR, DIVIDED DOSE FREQUENCY UNKNOWN
  18. MENESIT TABLETS - 100 [Suspect]
     Active Substance: CARBIDOPA\LEVODOPA
     Dosage: 200-300 MG/DAY DAILY DOSE UNKNOWN
     Route: 048
     Dates: start: 201310
  19. MENESIT TABLETS - 100 [Suspect]
     Active Substance: CARBIDOPA\LEVODOPA
     Dosage: 100 MG, QD, DIVIDED DOSE FREQUENCY UNKNOWN
     Route: 048
     Dates: start: 201504
  20. REQUIP [Suspect]
     Active Substance: ROPINIROLE HYDROCHLORIDE
     Indication: DEMENTIA WITH LEWY BODIES
     Dosage: 1 MG, QD, DIVIDED DOSE FREQUENCY UNKNOWN
     Route: 048
     Dates: start: 201411
  21. CLONAZEPAM. [Concomitant]
     Active Substance: CLONAZEPAM
     Dosage: 1.5 MG, QD, FORMULATION: POR, DIVIDED DOSE FREQUENCY UNKNOWN
     Route: 048

REACTIONS (6)
  - Oromandibular dystonia [Recovering/Resolving]
  - Altered state of consciousness [Recovering/Resolving]
  - Dyskinesia [Recovering/Resolving]
  - Overdose [Unknown]
  - Drug hypersensitivity [Recovering/Resolving]
  - Condition aggravated [Recovering/Resolving]

NARRATIVE: CASE EVENT DATE: 2014
